FAERS Safety Report 5322518-X (Version None)
Quarter: 2007Q2

REPORT INFORMATION
  Report Type: 
  Country: None (occurrence: None)
  Receive Date: 20070511
  Receipt Date: 20070426
  Transmission Date: 20071010
  Serious: Yes (Hospitalization)
  Sender: FDA-Public Use
  Company Number: NL-GENENTECH-232924

PATIENT
  Sex: Male

DRUGS (4)
  1. BEVACIZUMAB [Suspect]
     Indication: COLORECTAL CANCER
     Dosage: 525 MG, Q3W
     Route: 042
     Dates: start: 20060821
  2. CAPECITABINE [Suspect]
     Indication: COLORECTAL CANCER
     Dosage: 1500 MG, BID
     Route: 048
     Dates: start: 20060821
  3. OXALIPLATIN [Suspect]
     Indication: COLORECTAL CANCER
     Dosage: 180 MG, Q3W
     Route: 042
     Dates: start: 20060821
  4. LOPERAMIDE HCL [Concomitant]
     Indication: DRUG USE FOR UNKNOWN INDICATION

REACTIONS (4)
  - DEHYDRATION [None]
  - DIARRHOEA [None]
  - FISTULA [None]
  - HYPOKALAEMIA [None]
